FAERS Safety Report 4934893-6 (Version None)
Quarter: 2006Q1

REPORT INFORMATION
  Report Type: 
  Country: None (occurrence: None)
  Receive Date: 20060302
  Receipt Date: 20060215
  Transmission Date: 20060701
  Serious: Yes (Other)
  Sender: FDA-Public Use
  Company Number: 20060009227

PATIENT
  Age: 44 Year
  Sex: Male
  Weight: 62.5 kg

DRUGS (3)
  1. ADEFOVIR DIPIVOXIL (ADEFOVIR DIPIVOXIL) [Suspect]
     Indication: HEPATITIS B
     Dosage: 10 MG, 1 IN 1 D, ORAL
     Route: 048
     Dates: start: 20050914, end: 20060109
  2. AMOXICILLIN (AMOXICILLIN /00249601/) [Concomitant]
  3. IBUPROFEN [Concomitant]

REACTIONS (9)
  - ASPARTATE AMINOTRANSFERASE INCREASED [None]
  - BLOOD CREATINE PHOSPHOKINASE INCREASED [None]
  - BLOOD LACTATE DEHYDROGENASE INCREASED [None]
  - DIARRHOEA [None]
  - FATIGUE [None]
  - INFLUENZA [None]
  - MYALGIA [None]
  - MYOGLOBIN BLOOD INCREASED [None]
  - SENSATION OF HEAVINESS [None]
